FAERS Safety Report 8038664-6 (Version None)
Quarter: 2012Q1

REPORT INFORMATION
  Report Type: 
  Country: None (occurrence: None)
  Receive Date: 20120111
  Receipt Date: 20111205
  Transmission Date: 20120608
  Serious: No
  Sender: FDA-Public Use
  Company Number: US-AMGEN-USASP2011064386

PATIENT
  Age: 28 Year
  Sex: Male

DRUGS (2)
  1. AZULFIDINE [Concomitant]
     Dosage: 2 MG, UNK
     Dates: start: 20070101
  2. ENBREL [Suspect]
     Indication: SPONDYLITIS
     Dosage: 50 MG, QWK
     Dates: start: 20081205

REACTIONS (4)
  - OVERDOSE [None]
  - STAPHYLOCOCCAL INFECTION [None]
  - LOCALISED INFECTION [None]
  - MOOD ALTERED [None]
